FAERS Safety Report 8836115 (Version 1)
Quarter: 2012Q4

REPORT INFORMATION
  Report Type: 
  Country: IT (occurrence: IT)
  Receive Date: 20121011
  Receipt Date: 20121011
  Transmission Date: 20130627
  Serious: Yes (Death, Other)
  Sender: FDA-Public Use
  Company Number: PHHY2012IT088681

PATIENT
  Age: 66 Year
  Sex: Male

DRUGS (7)
  1. CICLOSPORIN [Suspect]
     Indication: RENAL TRANSPLANT
  2. BASILIXIMAB [Concomitant]
     Indication: RENAL TRANSPLANT
  3. MYCOPHENOLATE MOFETIL [Concomitant]
     Indication: RENAL TRANSPLANT
  4. PREDNISONE [Concomitant]
  5. CEFOTAXIME [Concomitant]
     Indication: ANTIBIOTIC PROPHYLAXIS
  6. SULFAMETHOXAZOLE W/TRIMETHOPRIM [Concomitant]
     Indication: PNEUMOCYSTIS JIROVECI INFECTION
  7. NYSTATIN [Concomitant]
     Indication: ANTIFUNGAL PROPHYLAXIS

REACTIONS (14)
  - Gastric cancer [Fatal]
  - Metastases to liver [Fatal]
  - Cytomegalovirus infection [Unknown]
  - Enterococcal infection [Unknown]
  - Aphthous stomatitis [Unknown]
  - Haematuria [Unknown]
  - Diarrhoea haemorrhagic [Unknown]
  - Anaemia [Unknown]
  - Abdominal pain [Unknown]
  - Abdominal pain upper [Unknown]
  - Mucosal haemorrhage [Unknown]
  - Gastric mucosa erythema [Unknown]
  - Gastric mucosal lesion [Unknown]
  - Pyrexia [Unknown]
